FAERS Safety Report 13609652 (Version 3)
Quarter: 2017Q3

REPORT INFORMATION
  Report Type: Report from Study
  Country: None (occurrence: US)
  Receive Date: 20170602
  Receipt Date: 20170726
  Transmission Date: 20171127
  Serious: Yes (Other)
  Sender: FDA-Public Use
  Company Number: US-ABBVIE-17P-163-1991708-00

PATIENT
  Age: 72 Year
  Sex: Female

DRUGS (15)
  1. VENCLEXTA [Suspect]
     Active Substance: VENETOCLAX
     Route: 048
     Dates: start: 20161107, end: 20161118
  2. MACROBID [Suspect]
     Active Substance: NITROFURANTOIN\NITROFURANTOIN MONOHYDRATE
     Indication: URINARY TRACT INFECTION
     Route: 048
  3. XIIDRA [Concomitant]
     Active Substance: LIFITEGRAST
     Indication: HYPOAESTHESIA
     Dosage: 0.5% 1 AMPULE, EYE DROPS BOTH EYES
     Route: 065
     Dates: start: 20170526
  4. VENCLEXTA [Suspect]
     Active Substance: VENETOCLAX
     Route: 048
     Dates: start: 20161206, end: 20170109
  5. VENCLEXTA [Suspect]
     Active Substance: VENETOCLAX
     Route: 048
     Dates: start: 20170303
  6. EMLA [Concomitant]
     Active Substance: LIDOCAINE\PRILOCAINE
     Indication: HYPOAESTHESIA
     Dosage: 2.5%
     Route: 061
  7. VENCLEXTA [Suspect]
     Active Substance: VENETOCLAX
     Indication: CHRONIC LYMPHOCYTIC LEUKAEMIA
     Route: 048
     Dates: start: 20161024, end: 20161030
  8. AMOXICILLIN. [Suspect]
     Active Substance: AMOXICILLIN
     Indication: ARTIFICIAL CROWN PROCEDURE
     Route: 048
  9. ESTRACE [Concomitant]
     Active Substance: ESTRADIOL
     Indication: HORMONE REPLACEMENT THERAPY
     Dosage: 0.5-1.0GM VAGINAL INSERTION CREAM
     Route: 065
     Dates: start: 20170413
  10. VENCLEXTA [Suspect]
     Active Substance: VENETOCLAX
     Route: 048
     Dates: start: 20161031, end: 20161106
  11. VENCLEXTA [Suspect]
     Active Substance: VENETOCLAX
     Route: 048
     Dates: start: 20161119, end: 20161205
  12. VENCLEXTA [Suspect]
     Active Substance: VENETOCLAX
     Route: 048
     Dates: start: 20170110, end: 20170302
  13. BIOTIN [Concomitant]
     Active Substance: BIOTIN
     Indication: PRODUCT USED FOR UNKNOWN INDICATION
     Dosage: 1000
     Route: 065
  14. BROMILANE [Concomitant]
     Indication: VITAMIN SUPPLEMENTATION
     Route: 065
  15. WOBENZYNE [Concomitant]
     Indication: VITAMIN SUPPLEMENTATION
     Route: 065

REACTIONS (9)
  - Polyp [Unknown]
  - Abdominal pain [Recovering/Resolving]
  - Benign ovarian tumour [Not Recovered/Not Resolved]
  - Inflammation [Unknown]
  - Arthritis [Unknown]
  - Urinary tract infection [Recovered/Resolved]
  - Peripheral swelling [Unknown]
  - Constipation [Recovered/Resolved]
  - Artificial crown procedure [Recovered/Resolved]

NARRATIVE: CASE EVENT DATE: 20170524
